FAERS Safety Report 11588129 (Version 2)
Quarter: 2016Q1

REPORT INFORMATION
  Report Type: Report from Study
  Country: US (occurrence: US)
  Receive Date: 20151002
  Receipt Date: 20160125
  Transmission Date: 20160525
  Serious: No
  Sender: FDA-Public Use
  Company Number: US-AMGEN-USASL2015099138

PATIENT
  Age: 66 Year
  Sex: Female

DRUGS (1)
  1. ENBREL [Suspect]
     Active Substance: ETANERCEPT
     Indication: RHEUMATOID ARTHRITIS
     Dosage: UNK
     Route: 065
     Dates: start: 20150625

REACTIONS (16)
  - Joint range of motion decreased [Unknown]
  - Rhinorrhoea [Unknown]
  - Feeling abnormal [Unknown]
  - Skin tightness [Unknown]
  - Musculoskeletal stiffness [Unknown]
  - Pain [Unknown]
  - Increased appetite [Unknown]
  - Oropharyngeal pain [Unknown]
  - Sinusitis [Unknown]
  - Headache [Unknown]
  - Secretion discharge [Unknown]
  - Urinary tract infection [Unknown]
  - Diarrhoea [Unknown]
  - Impaired healing [Not Recovered/Not Resolved]
  - Pain in extremity [Unknown]
  - Fatigue [Unknown]

NARRATIVE: CASE EVENT DATE: 2015
